FAERS Safety Report 8926413 (Version 1)
Quarter: 2012Q4

REPORT INFORMATION
  Report Type: 
  Country: US (occurrence: US)
  Receive Date: 20121127
  Receipt Date: 20121127
  Transmission Date: 20130627
  Serious: No
  Sender: FDA-Public Use
  Company Number: US-009507513-1211USA008967

PATIENT
  Sex: Male

DRUGS (5)
  1. VYTORIN [Suspect]
     Indication: BLOOD CHOLESTEROL
     Dosage: 1 DF, qd
     Route: 048
     Dates: start: 201111, end: 201208
  2. AMLODIPINE [Concomitant]
     Dosage: 5 mg, UNK
  3. LEVOTHYROXINE SODIUM [Concomitant]
     Dosage: 88 Microgram, UNK
  4. ALLOPURINOL [Concomitant]
     Dosage: 100 mg, UNK
  5. HYDROCHLOROTHIAZIDE (+) LISINOPRIL [Concomitant]
     Dosage: 12.5/10

REACTIONS (1)
  - Pain in extremity [Recovering/Resolving]
